FAERS Safety Report 24763557 (Version 1)
Quarter: 2024Q4

REPORT INFORMATION
  Report Type: Report from Study
  Country: US (occurrence: US)
  Receive Date: 20241223
  Receipt Date: 20241223
  Transmission Date: 20250115
  Serious: Yes (Other)
  Sender: JOHNSON AND JOHNSON
  Company Number: US-ABBVIE-6053654

PATIENT
  Age: 73 Year
  Sex: Female

DRUGS (1)
  1. IMBRUVICA [Suspect]
     Active Substance: IBRUTINIB
     Indication: Chronic lymphocytic leukaemia
     Route: 048
     Dates: start: 202411

REACTIONS (6)
  - Neuropathy peripheral [Unknown]
  - Diabetes mellitus [Unknown]
  - Hyperhidrosis [Unknown]
  - Heart rate abnormal [Unknown]
  - Dyspnoea [Unknown]
  - Tremor [Unknown]

NARRATIVE: CASE EVENT DATE: 20240101
